FAERS Safety Report 6272769-5 (Version None)
Quarter: 2009Q3

REPORT INFORMATION
  Report Type: 
  Country: None (occurrence: None)
  Receive Date: 20090716
  Receipt Date: 20090716
  Transmission Date: 20100115
  Serious: Yes (Hospitalization)
  Sender: FDA-Public Use
  Company Number: None

PATIENT
  Sex: Male
  Weight: 99.7913 kg

DRUGS (2)
  1. PAROXETINE HCL [Suspect]
     Indication: DEPRESSION
     Dosage: 1 PER DAY AT LEAST 10 YEARS
  2. PAROXETINE HCL [Suspect]
     Indication: NEURALGIA
     Dosage: 1 PER DAY AT LEAST 10 YEARS

REACTIONS (5)
  - CRYING [None]
  - DRUG DOSE OMISSION [None]
  - FEELING ABNORMAL [None]
  - MENTAL DISORDER [None]
  - VOMITING [None]
